FAERS Safety Report 9401051 (Version 1)
Quarter: 2013Q3

REPORT INFORMATION
  Report Type: Spontaneous
  Country: GB (occurrence: GB)
  Receive Date: 20130715
  Receipt Date: 20130715
  Transmission Date: 20140515
  Serious: Yes (Other)
  Sender: FDA-Public Use
  Company Number: GB-ACTAVIS-2013-12415

PATIENT
  Age: 16 Year
  Sex: Male

DRUGS (1)
  1. CETIRIZINE (UNKNOWN) [Suspect]
     Indication: SEASONAL ALLERGY
     Dosage: 10 MG, UNKNOWN
     Route: 048
     Dates: start: 20130618, end: 20130618

REACTIONS (1)
  - Dystonia [Unknown]
